FAERS Safety Report 8605415-3 (Version None)
Quarter: 2012Q3

REPORT INFORMATION
  Report Type: 
  Country: None (occurrence: None)
  Receive Date: 20120820
  Receipt Date: 20120805
  Transmission Date: 20120928
  Serious: No
  Sender: FDA-Public Use
  Company Number: US-JNJFOC-20120804527

PATIENT
  Sex: Female
  Weight: 65.77 kg

DRUGS (8)
  1. FENTANYL-100 [Suspect]
     Route: 062
     Dates: start: 20120601
  2. FENTANYL-100 [Suspect]
     Indication: FIBROMYALGIA
     Route: 062
     Dates: start: 20120601
  3. FENTANYL-100 [Suspect]
     Indication: BACK PAIN
     Dosage: 12.5 UG/HR
     Route: 062
     Dates: start: 20120601, end: 20120801
  4. FENTANYL-100 [Suspect]
     Route: 062
     Dates: start: 20120401, end: 20120501
  5. FENTANYL-100 [Suspect]
     Dosage: 25 UG/HR AND 12.5 UG/HR
     Route: 062
     Dates: start: 20120501, end: 20120601
  6. FENTANYL-100 [Suspect]
     Route: 062
     Dates: start: 20120401, end: 20120501
  7. FENTANYL-100 [Suspect]
     Dosage: 12.5 UG/HR
     Route: 062
     Dates: start: 20120601, end: 20120801
  8. FENTANYL-100 [Suspect]
     Dosage: 25 UG/HR AND 12.5 UG/HR
     Route: 062
     Dates: start: 20120501, end: 20120601

REACTIONS (7)
  - HEADACHE [None]
  - APPLICATION SITE RASH [None]
  - THERAPEUTIC RESPONSE DECREASED [None]
  - WRONG TECHNIQUE IN DRUG USAGE PROCESS [None]
  - DRUG PRESCRIBING ERROR [None]
  - WITHDRAWAL SYNDROME [None]
  - PRODUCT QUALITY ISSUE [None]
